FAERS Safety Report 12492884 (Version 1)
Quarter: 2016Q2

REPORT INFORMATION
  Report Type: Spontaneous
  Country: US (occurrence: US)
  Receive Date: 20160623
  Receipt Date: 20160623
  Transmission Date: 20160815
  Serious: Yes (Death)
  Sender: FDA-Public Use
  Company Number: US-DEPOMED, INC.-US-2016DEP010329

PATIENT

DRUGS (1)
  1. GRALISE [Suspect]
     Active Substance: GABAPENTIN
     Indication: TRIGEMINAL NEURALGIA
     Dosage: 2400 MG, QD WITH EVENING MEAL
     Route: 048
     Dates: start: 20151207, end: 20160610

REACTIONS (1)
  - Death [Fatal]

NARRATIVE: CASE EVENT DATE: 20160610
